FAERS Safety Report 16129457 (Version 4)
Quarter: 2019Q3

REPORT INFORMATION
  Report Type: Spontaneous
  Country: JP (occurrence: JP)
  Receive Date: 20190328
  Receipt Date: 20190930
  Transmission Date: 20191004
  Serious: Yes (Death, Hospitalization, Other)
  Sender: FDA-Public Use
  Company Number: JP-ASTRAZENECA-2019SE48293

PATIENT
  Age: 75 Year
  Sex: Male

DRUGS (1)
  1. IMFINZI [Suspect]
     Active Substance: DURVALUMAB
     Indication: NON-SMALL CELL LUNG CANCER
     Route: 041
     Dates: start: 20181211, end: 20181225

REACTIONS (11)
  - Gastrointestinal ischaemia [Fatal]
  - Hypoalbuminaemia [Unknown]
  - Gastrointestinal necrosis [Fatal]
  - Pneumonitis [Not Recovered/Not Resolved]
  - Pneumonia aspiration [Unknown]
  - Radiation pneumonitis [Unknown]
  - General physical health deterioration [Unknown]
  - Diarrhoea [Unknown]
  - Blood creatine phosphokinase increased [Unknown]
  - Abdominal distension [Unknown]
  - Blood lactic acid increased [Unknown]

NARRATIVE: CASE EVENT DATE: 20181225
